FAERS Safety Report 5505170-X (Version None)
Quarter: 2007Q4

REPORT INFORMATION
  Report Type: 
  Country: None (occurrence: None)
  Receive Date: 20071102
  Receipt Date: 20071025
  Transmission Date: 20080405
  Serious: Yes (Hospitalization, Other)
  Sender: FDA-Public Use
  Company Number: PHEH2007US13917

PATIENT
  Age: 64 Year
  Sex: Male
  Weight: 86 kg

DRUGS (4)
  1. RECLAST [Suspect]
     Dosage: UNK
  2. RYTHMOL [Suspect]
  3. VITAMIN CAP [Concomitant]
     Dosage: UNK, QD
     Route: 048
  4. COUMADIN [Concomitant]
     Dosage: 2 MG, QD
     Route: 048

REACTIONS (10)
  - ALBUMIN GLOBULIN RATIO DECREASED [None]
  - ATRIAL FIBRILLATION [None]
  - BLOOD BILIRUBIN INCREASED [None]
  - BLOOD CHLORIDE INCREASED [None]
  - FATIGUE [None]
  - FEELING ABNORMAL [None]
  - HYPOCALCAEMIA [None]
  - MUSCLE SPASMS [None]
  - OEDEMA PERIPHERAL [None]
  - SINUS BRADYCARDIA [None]
